FAERS Safety Report 25669474 (Version 2)
Quarter: 2025Q3

REPORT INFORMATION
  Report Type: Spontaneous
  Country: US (occurrence: US)
  Receive Date: 20250812
  Receipt Date: 20250817
  Transmission Date: 20251020
  Serious: No
  Sender: NOVARTIS
  Company Number: US-002147023-NVSC2025US126431

PATIENT
  Age: 76 Year
  Sex: Female

DRUGS (1)
  1. COSENTYX [Suspect]
     Active Substance: SECUKINUMAB
     Indication: Product used for unknown indication
     Route: 065

REACTIONS (5)
  - Device defective [Unknown]
  - Device leakage [Unknown]
  - Device issue [Unknown]
  - Drug dose omission by device [Unknown]
  - Accidental exposure to product [Unknown]

NARRATIVE: CASE EVENT DATE: 20250808
